FAERS Safety Report 15265160 (Version 1)
Quarter: 2018Q3

REPORT INFORMATION
  Report Type: Spontaneous
  Country: US (occurrence: US)
  Receive Date: 20180723
  Receipt Date: 20180723
  Transmission Date: 20181010
  Serious: Yes (Hospitalization)
  Sender: FDA-Public Use
  Company Number: None

PATIENT
  Sex: Male

DRUGS (3)
  1. NAPROXEN 500MG [Concomitant]
     Active Substance: NAPROXEN
  2. HYDROCODONE/APAP 5/325MG [Concomitant]
  3. ENBREL [Suspect]
     Active Substance: ETANERCEPT
     Indication: PRODUCT USED FOR UNKNOWN INDICATION
     Route: 058
     Dates: start: 20180219

REACTIONS (2)
  - Knee arthroplasty [None]
  - Drug dose omission [None]
